FAERS Safety Report 5942994-9 (Version None)
Quarter: 2008Q4

REPORT INFORMATION
  Report Type: 
  Country: None (occurrence: None)
  Receive Date: 20081106
  Receipt Date: 20081027
  Transmission Date: 20090506
  Serious: Yes (Death)
  Sender: FDA-Public Use
  Company Number: FR-ABBOTT-08P-056-0483665-00

PATIENT
  Sex: Male
  Weight: 85 kg

DRUGS (5)
  1. RITONAVIR SOFT GELATIN CAPSULES [Suspect]
     Indication: HIV INFECTION
     Route: 048
     Dates: start: 20040210
  2. TIPRANAVIR [Concomitant]
     Indication: HIV INFECTION
     Route: 048
     Dates: start: 20040210
  3. TENOFOVIR [Concomitant]
     Indication: HIV INFECTION
     Dates: start: 20040210
  4. EFAVIRENZ [Concomitant]
     Indication: HIV INFECTION
     Route: 048
     Dates: start: 20040210
  5. ENFUVIRTIDE [Concomitant]
     Indication: HIV INFECTION
     Route: 048
     Dates: start: 20040210

REACTIONS (1)
  - END STAGE AIDS [None]
